FAERS Safety Report 18013692 (Version 1)
Quarter: 2020Q3

REPORT INFORMATION
  Report Type: Report from Study
  Country: US (occurrence: US)
  Receive Date: 20200713
  Receipt Date: 20200713
  Transmission Date: 20201103
  Serious: Yes (Other)
  Sender: FDA-Public Use
  Company Number: NVSC2020US194371

PATIENT
  Age: 54 Year
  Sex: Female
  Weight: 89.81 kg

DRUGS (2)
  1. PIQRAY [Suspect]
     Active Substance: ALPELISIB
     Indication: ENDOMETRIAL CANCER METASTATIC
     Dosage: 300 MG, QD
     Route: 048
     Dates: start: 20200521
  2. PIQRAY [Suspect]
     Active Substance: ALPELISIB
     Indication: OVARIAN CANCER

REACTIONS (3)
  - Rash [Unknown]
  - Product use in unapproved indication [Unknown]
  - Blood glucose increased [Not Recovered/Not Resolved]

NARRATIVE: CASE EVENT DATE: 20200524
